FAERS Safety Report 26075230 (Version 2)
Quarter: 2025Q4

REPORT INFORMATION
  Report Type: Report from Study
  Country: EU (occurrence: EU)
  Receive Date: 20251121
  Receipt Date: 20251209
  Transmission Date: 20260118
  Serious: Yes (Hospitalization)
  Sender: EISAI
  Company Number: EU-Eisai Medical Research-EC-2023-136983

PATIENT
  Age: 65 Year
  Sex: Female

DRUGS (1)
  1. LENVATINIB [Suspect]
     Active Substance: LENVATINIB
     Indication: Follicular thyroid cancer
     Dosage: DOSE AND FREQUENCY UNKNOWN
     Route: 048
     Dates: start: 20221024, end: 202302

REACTIONS (5)
  - Renal-limited thrombotic microangiopathy [Recovering/Resolving]
  - Fatigue [Not Recovered/Not Resolved]
  - Limb discomfort [Unknown]
  - Liver disorder [Unknown]
  - Hypertension [Not Recovered/Not Resolved]

NARRATIVE: CASE EVENT DATE: 20221101
